FAERS Safety Report 4316911-1 (Version None)
Quarter: 2004Q1

REPORT INFORMATION
  Report Type: 
  Country: None (occurrence: None)
  Receive Date: 20040308
  Receipt Date: 20040113
  Transmission Date: 20041129
  Serious: Yes (Life-Threatening)
  Sender: FDA-Public Use
  Company Number: ALMO2004002

PATIENT
  Age: 37 Year
  Sex: Female

DRUGS (1)
  1. ALMOGRAN [Suspect]
     Indication: MIGRAINE
     Dosage: 12.5 MG DAILY PO
     Route: 048
     Dates: start: 20031231, end: 20031231

REACTIONS (1)
  - ANAPHYLACTIC SHOCK [None]
